FAERS Safety Report 20829908 (Version 2)
Quarter: 2023Q4

REPORT INFORMATION
  Report Type: Spontaneous
  Country: FR (occurrence: FR)
  Receive Date: 20220513
  Receipt Date: 20231110
  Transmission Date: 20240109
  Serious: Yes (Other)
  Sender: FDA-Public Use
  Company Number: FR-AFSSAPS-AN20221062

PATIENT
  Age: 53 Year
  Sex: Female
  Weight: 47 kg

DRUGS (2)
  1. RAMIPRIL [Interacting]
     Active Substance: RAMIPRIL
     Indication: Hypertension
     Dosage: 5 MILLIGRAM, ONCE A DAY
     Route: 048
     Dates: end: 20220409
  2. ALTEPLASE [Interacting]
     Active Substance: ALTEPLASE
     Indication: Ischaemic stroke
     Dosage: UNK
     Route: 041
     Dates: start: 20220409, end: 20220409

REACTIONS (2)
  - Drug interaction [Recovered/Resolved]
  - Angioedema [Recovered/Resolved]

NARRATIVE: CASE EVENT DATE: 20220410
